FAERS Safety Report 4307497-6 (Version None)
Quarter: 2004Q1

REPORT INFORMATION
  Report Type: 
  Country: None (occurrence: None)
  Receive Date: 20040226
  Receipt Date: 20040210
  Transmission Date: 20041129
  Serious: Yes (Hospitalization)
  Sender: FDA-Public Use
  Company Number: 30018554-R04A132-1

PATIENT
  Age: 47 Year
  Sex: Male
  Weight: 62 kg

DRUGS (2)
  1. DIANEAL PD-2 W/ DEXTROSE 1.5% [Suspect]
     Indication: PERITONEAL DIALYSIS
     Dosage: 1.5% SOLUTION, FREQUENCY UNK; INTRAPERITONEAL
     Route: 033
     Dates: start: 20040101
  2. DIANEAL PD-2, 2.5% TWIN-BAG [Concomitant]

REACTIONS (7)
  - ABDOMINAL PAIN [None]
  - CATHETER RELATED COMPLICATION [None]
  - HICCUPS [None]
  - INFUSION SITE PAIN [None]
  - NAUSEA [None]
  - PHARMACEUTICAL PRODUCT COMPLAINT [None]
  - VOMITING [None]
